FAERS Safety Report 4997212-5 (Version None)
Quarter: 2006Q2

REPORT INFORMATION
  Report Type: 
  Country: None (occurrence: None)
  Receive Date: 20060505
  Receipt Date: 20060505
  Transmission Date: 20061013
  Serious: Yes (Hospitalization)
  Sender: FDA-Public Use
  Company Number: None

PATIENT
  Age: 79 Year
  Sex: Female
  Weight: 76.2 kg

DRUGS (6)
  1. DIGOXIN [Suspect]
     Indication: ATRIAL FIBRILLATION
     Dosage: 0.125 DAILY PO
     Route: 048
  2. ASPIRIN [Concomitant]
  3. PLAVIX [Concomitant]
  4. VERAPAMIL [Concomitant]
  5. DIOVAN [Concomitant]
  6. .. [Concomitant]

REACTIONS (3)
  - ASTHENIA [None]
  - BRADYCARDIA [None]
  - HYPOTENSION [None]
